FAERS Safety Report 14822163 (Version 1)
Quarter: 2018Q2

REPORT INFORMATION
  Report Type: Report from Study
  Country: US (occurrence: US)
  Receive Date: 20180427
  Receipt Date: 20180427
  Transmission Date: 20180711
  Serious: Yes (Hospitalization, Other)
  Sender: FDA-Public Use
  Company Number: US-BAYER-2018-078383

PATIENT
  Age: 71 Year
  Sex: Male

DRUGS (1)
  1. BETASERON [Suspect]
     Active Substance: INTERFERON BETA-1B
     Indication: MULTIPLE SCLEROSIS
     Dosage: 1 VIAL QOD
     Route: 058
     Dates: start: 20150225

REACTIONS (3)
  - Incorrect dose administered [None]
  - Hospitalisation [None]
  - Apallic syndrome [None]

NARRATIVE: CASE EVENT DATE: 201711
